FAERS Safety Report 18469745 (Version 9)
Quarter: 2021Q3

REPORT INFORMATION
  Report Type: Spontaneous
  Country: US (occurrence: US)
  Receive Date: 20201105
  Receipt Date: 20210909
  Transmission Date: 20211014
  Serious: Yes (Other)
  Sender: FDA-Public Use
  Company Number: US-PFIZER INC-2020427184

PATIENT
  Age: 76 Year
  Sex: Female

DRUGS (3)
  1. INLYTA [Suspect]
     Active Substance: AXITINIB
     Dosage: 5 MG
  2. INLYTA [Suspect]
     Active Substance: AXITINIB
     Dosage: 5 MG
     Dates: end: 20201101
  3. AMENA [Concomitant]
     Dosage: UNK

REACTIONS (12)
  - Fatigue [Recovering/Resolving]
  - Dizziness exertional [Unknown]
  - Illness [Unknown]
  - Dysgeusia [Unknown]
  - Constipation [Unknown]
  - Diarrhoea [Unknown]
  - Depressed mood [Not Recovered/Not Resolved]
  - Multiple allergies [Unknown]
  - Bipolar I disorder [Not Recovered/Not Resolved]
  - Stomatitis [Unknown]
  - Dyspnoea [Unknown]
  - Dry mouth [Unknown]
